FAERS Safety Report 6482700-5 (Version None)
Quarter: 2009Q4

REPORT INFORMATION
  Report Type: 
  Country: None (occurrence: None)
  Receive Date: 20091209
  Receipt Date: 20091202
  Transmission Date: 20100525
  Serious: Yes (Hospitalization)
  Sender: FDA-Public Use
  Company Number: US-ELI_LILLY_AND_COMPANY-US200912000819

PATIENT
  Age: 32 Year
  Sex: Female

DRUGS (4)
  1. HUMALOG [Suspect]
     Indication: DIABETES MELLITUS
     Dosage: UNK, AS NEEDED
     Dates: start: 20020101
  2. HUMALOG [Suspect]
     Dosage: UNK, AS NEEDED
     Route: 058
     Dates: start: 20040401
  3. HUMALOG [Suspect]
     Dosage: 19 U, UNK
     Dates: start: 20091202
  4. HUMALOG [Suspect]
     Dosage: 19 U, UNK
     Dates: start: 20091202

REACTIONS (10)
  - BLOOD GLUCOSE INCREASED [None]
  - DEHYDRATION [None]
  - DIABETIC KETOACIDOSIS [None]
  - DRUG EXPOSURE DURING PREGNANCY [None]
  - DRUG INEFFECTIVE [None]
  - NAUSEA [None]
  - PREMATURE LABOUR [None]
  - SWELLING [None]
  - TACHYCARDIA [None]
  - THREATENED LABOUR [None]
